FAERS Safety Report 13178094 (Version 4)
Quarter: 2017Q3

REPORT INFORMATION
  Report Type: Spontaneous
  Country: BE (occurrence: BE)
  Receive Date: 20170202
  Receipt Date: 20170731
  Transmission Date: 20171127
  Serious: Yes (Life-Threatening, Hospitalization, Other)
  Sender: FDA-Public Use
  Company Number: BE-SUN PHARMACEUTICAL INDUSTRIES LTD-2017R1-132640

PATIENT
  Age: 61 Year
  Sex: Male

DRUGS (23)
  1. CARBOPLATIN. [Suspect]
     Active Substance: CARBOPLATIN
     Indication: NON-HODGKIN^S LYMPHOMA
     Dosage: R-ICE
     Route: 065
  2. DOXORUBICIN [Suspect]
     Active Substance: DOXORUBICIN
     Indication: NON-HODGKIN^S LYMPHOMA
     Dosage: R-CHOP
     Route: 065
  3. MELPHALAN. [Suspect]
     Active Substance: MELPHALAN
     Dosage: 140 MG/M2, ON DAY 6
     Route: 065
  4. VINCRISTINE [Suspect]
     Active Substance: VINCRISTINE
     Indication: KAPOSI^S SARCOMA
     Dosage: R-CHOP
     Route: 065
  5. ETOPOSIDE. [Suspect]
     Active Substance: ETOPOSIDE
     Indication: NON-HODGKIN^S LYMPHOMA
     Dosage: 15 MG/M2, ON DAY 2,3,4,AND 5
     Route: 065
  6. MELPHALAN. [Suspect]
     Active Substance: MELPHALAN
     Indication: NON-HODGKIN^S LYMPHOMA
     Dosage: 30 MG/M2, ON DAY 6
     Route: 065
  7. RITUXIMAB. [Suspect]
     Active Substance: RITUXIMAB
     Indication: NON-HODGKIN^S LYMPHOMA
     Dosage: R-DHAP
     Route: 065
  8. RITUXIMAB. [Suspect]
     Active Substance: RITUXIMAB
     Dosage: R-ICE
     Route: 065
  9. AMLODIPINE [Concomitant]
     Active Substance: AMLODIPINE BESYLATE
     Indication: HYPERTENSION
     Dosage: UNK
     Route: 065
  10. DEXAMETHASONE. [Suspect]
     Active Substance: DEXAMETHASONE
     Indication: NON-HODGKIN^S LYMPHOMA
     Dosage: R-DHAP
     Route: 065
  11. CARMUSTINE [Suspect]
     Active Substance: CARMUSTINE
     Indication: NON-HODGKIN^S LYMPHOMA
     Dosage: 60 MG/M2, ON DAY 1
     Route: 065
  12. ETOPOSIDE. [Suspect]
     Active Substance: ETOPOSIDE
     Dosage: R-ICE
     Route: 065
  13. PREDNISONE. [Suspect]
     Active Substance: PREDNISONE
     Indication: NON-HODGKIN^S LYMPHOMA
     Dosage: R-CHOP
     Route: 065
  14. CARMUSTINE [Suspect]
     Active Substance: CARMUSTINE
     Dosage: 300 MG/M2, ON DAY 1
     Route: 065
  15. CYCLOPHOSPHAMIDE. [Suspect]
     Active Substance: CYCLOPHOSPHAMIDE
     Dosage: HIGH DOSE
     Route: 065
  16. CYTARABINE. [Suspect]
     Active Substance: CYTARABINE
     Dosage: 2 X 100 MG/M2, ON DAY 2,3,4,AND 5
     Route: 065
  17. ETOPOSIDE. [Suspect]
     Active Substance: ETOPOSIDE
     Dosage: 200 MG/M2, ON DAY 2 - 5
     Route: 065
  18. CYTARABINE. [Suspect]
     Active Substance: CYTARABINE
     Indication: NON-HODGKIN^S LYMPHOMA
     Dosage: R-DHAP
     Route: 065
  19. CYTARABINE. [Suspect]
     Active Substance: CYTARABINE
     Dosage: 2 X 200 MG/M2, ON DAY 2-5
     Route: 065
  20. RITUXIMAB. [Suspect]
     Active Substance: RITUXIMAB
     Dosage: R-CHOP
     Route: 065
  21. IFOSFAMIDE. [Suspect]
     Active Substance: IFOSFAMIDE
     Indication: NON-HODGKIN^S LYMPHOMA
     Dosage: R-ICE
     Route: 065
  22. CISPLATIN. [Suspect]
     Active Substance: CISPLATIN
     Indication: NON-HODGKIN^S LYMPHOMA
     Dosage: R-DHAP
     Route: 065
  23. CYCLOPHOSPHAMIDE. [Suspect]
     Active Substance: CYCLOPHOSPHAMIDE
     Indication: NON-HODGKIN^S LYMPHOMA
     Dosage: R-CHOP
     Route: 065

REACTIONS (3)
  - Kaposi^s sarcoma [Recovered/Resolved]
  - Human herpesvirus 8 infection [Unknown]
  - Tinnitus [Unknown]
